FAERS Safety Report 18189944 (Version 3)
Quarter: 2022Q4

REPORT INFORMATION
  Report Type: Spontaneous
  Country: US (occurrence: US)
  Receive Date: 20200825
  Receipt Date: 20221012
  Transmission Date: 20230113
  Serious: No
  Sender: FDA-Public Use
  Company Number: US-CELLTRION INC.-2019US026777

PATIENT

DRUGS (4)
  1. INFLECTRA [Suspect]
     Active Substance: INFLIXIMAB-DYYB
     Indication: Product used for unknown indication
     Dosage: 6 VIALS ON WEEK 0, 4, AND 8
     Route: 065
  2. INFLECTRA [Suspect]
     Active Substance: INFLIXIMAB-DYYB
     Dosage: STARTING DOSE WEEK 4
     Route: 065
  3. INFLECTRA [Suspect]
     Active Substance: INFLIXIMAB-DYYB
     Dosage: 2-100 MG EVERY 8 WEEKS
     Route: 065
  4. INFLECTRA [Suspect]
     Active Substance: INFLIXIMAB-DYYB
     Dosage: AGENT REPORTS AS QUANTITY OF 3, 100 MG VIALS

REACTIONS (4)
  - Off label use [Unknown]
  - Product prescribing issue [Unknown]
  - Product dose omission issue [Unknown]
  - Treatment noncompliance [Unknown]
